FAERS Safety Report 4491064-8 (Version None)
Quarter: 2004Q3

REPORT INFORMATION
  Report Type: 
  Country: None (occurrence: None)
  Receive Date: 20040927
  Receipt Date: 20040805
  Transmission Date: 20050211
  Serious: No
  Sender: FDA-Public Use
  Company Number: USA040773832

PATIENT
  Age: 16 Year
  Sex: Male

DRUGS (2)
  1. STRATTERA [Suspect]
     Indication: ATTENTION DEFICIT/HYPERACTIVITY DISORDER
     Dosage: 10 MG
     Dates: start: 20040715, end: 20040719
  2. PROZAC [Suspect]
     Indication: ANXIETY
     Dosage: 20 MG DAY
     Dates: start: 20030601

REACTIONS (2)
  - AGGRESSION [None]
  - AGITATION [None]
